FAERS Safety Report 9285678 (Version 1)
Quarter: 2013Q2

REPORT INFORMATION
  Report Type: Spontaneous
  Country: NZ (occurrence: NZ)
  Receive Date: 20130513
  Receipt Date: 20130513
  Transmission Date: 20140414
  Serious: Yes (Other)
  Sender: FDA-Public Use
  Company Number: NZ-PFIZER INC-2013144070

PATIENT
  Sex: Male

DRUGS (1)
  1. EFEXOR XR [Suspect]
     Dosage: UNK

REACTIONS (3)
  - Urinary tract infection [Unknown]
  - Blood pressure increased [Unknown]
  - Hyperhidrosis [Unknown]
